FAERS Safety Report 19456931 (Version 3)
Quarter: 2021Q2

REPORT INFORMATION
  Report Type: Report from Study
  Country: None (occurrence: ES)
  Receive Date: 20210624
  Receipt Date: 20210629
  Transmission Date: 20210717
  Serious: Yes (Other)
  Sender: FDA-Public Use
  Company Number: ES-ABBVIE-21K-144-3962188-00

PATIENT
  Age: 71 Year
  Sex: Female
  Weight: 74 kg

DRUGS (2)
  1. DUODOPA [Suspect]
     Active Substance: CARBIDOPA\LEVODOPA
     Indication: PARKINSON^S DISEASE
     Route: 050
     Dates: start: 20210616, end: 20210621
  2. DUODOPA [Suspect]
     Active Substance: CARBIDOPA\LEVODOPA
     Dosage: CONTINUOUS DOSE DECREASED BY 0.3 ML/H
     Route: 050
     Dates: start: 20210621

REACTIONS (10)
  - Haemorrhoids [Recovered/Resolved]
  - Stoma site discharge [Unknown]
  - Rectal haemorrhage [Recovered/Resolved]
  - Rectal prolapse [Recovered/Resolved]
  - Dyskinesia [Recovered/Resolved]
  - Anxiety [Unknown]
  - Stoma site pain [Recovered/Resolved]
  - Stoma site erythema [Recovering/Resolving]
  - Abdominal pain [Recovered/Resolved]
  - Constipation [Not Recovered/Not Resolved]

NARRATIVE: CASE EVENT DATE: 202106
